FAERS Safety Report 4749698-9 (Version None)
Quarter: 2005Q3

REPORT INFORMATION
  Report Type: 
  Country: None (occurrence: None)
  Receive Date: 20050822
  Receipt Date: 20050401
  Transmission Date: 20060218
  Serious: Yes (Hospitalization)
  Sender: FDA-Public Use
  Company Number: US-ROCHE-400755

PATIENT
  Age: 46 Year
  Sex: Female
  Weight: 124.3 kg

DRUGS (9)
  1. PEGASYS [Suspect]
     Route: 058
     Dates: start: 20020915, end: 20030515
  2. PEGASYS [Suspect]
     Route: 058
     Dates: start: 20050318
  3. COPEGUS [Suspect]
     Route: 048
     Dates: start: 20020915, end: 20030515
  4. COPEGUS [Suspect]
     Route: 048
     Dates: start: 20050318
  5. INTERFERON ALFA-2A [Suspect]
     Dosage: ROUTE OF ADMINISTRATION: INJ.
     Route: 050
     Dates: start: 20010615, end: 20010615
  6. TOPROL-XL [Concomitant]
     Route: 048
     Dates: start: 20010615
  7. LEXAPRO [Concomitant]
     Indication: DEPRESSION
     Route: 048
     Dates: start: 20050115
  8. TOPAMAX [Concomitant]
     Indication: MOOD SWINGS
     Route: 048
     Dates: start: 20050115
  9. PEG-INTRON [Concomitant]
     Dosage: ROUTE OF ADMINISTRATION: INJ.
     Route: 050
     Dates: start: 20020615, end: 20020915

REACTIONS (13)
  - ALOPECIA [None]
  - ANOREXIA [None]
  - BACK PAIN [None]
  - BLISTER [None]
  - CONVULSION [None]
  - DYSSTASIA [None]
  - INFLUENZA LIKE ILLNESS [None]
  - PAIN IN EXTREMITY [None]
  - PNEUMONIA [None]
  - RASH [None]
  - THERAPY NON-RESPONDER [None]
  - TREMOR [None]
  - WEIGHT DECREASED [None]
